FAERS Safety Report 12211141 (Version 1)
Quarter: 2016Q1

REPORT INFORMATION
  Report Type: Spontaneous
  Country: US (occurrence: None)
  Receive Date: 20160324
  Receipt Date: 20160324
  Transmission Date: 20160526
  Serious: No
  Sender: FDA-Public Use
  Company Number: None

PATIENT
  Age: 26 Year
  Sex: Male

DRUGS (1)
  1. HUMIRA [Suspect]
     Active Substance: ADALIMUMAB
     Indication: RHEUMATOID ARTHRITIS
     Dosage: 40 MG Q 2 WKS SUB-Q
     Route: 058
     Dates: start: 20151224

REACTIONS (1)
  - Adjustment disorder with depressed mood [None]

NARRATIVE: CASE EVENT DATE: 20160316
